FAERS Safety Report 7022870-3 (Version None)
Quarter: 2010Q3

REPORT INFORMATION
  Report Type: 
  Country: None (occurrence: None)
  Receive Date: 20100916
  Receipt Date: 20100816
  Transmission Date: 20110219
  Serious: Yes (Other)
  Sender: FDA-Public Use
  Company Number: DKLU1064394 (O)

PATIENT
  Age: 6 Year
  Sex: Female

DRUGS (4)
  1. SABRIL [Suspect]
     Indication: INFANTILE SPASMS
     Dosage: SEE IMAGE
     Dates: start: 20060101
  2. FRISIUM (CLOBAZAM) [Concomitant]
  3. ZOLOFT [Concomitant]
  4. CLONIDINE [Concomitant]

REACTIONS (2)
  - SOMNOLENCE [None]
  - VISUAL ACUITY REDUCED [None]
